FAERS Safety Report 7367457-8 (Version None)
Quarter: 2011Q1

REPORT INFORMATION
  Report Type: 
  Country: None (occurrence: None)
  Receive Date: 20110322
  Receipt Date: 20110222
  Transmission Date: 20110831
  Serious: Yes (Hospitalization)
  Sender: FDA-Public Use
  Company Number: US-BAYER-201031545NA

PATIENT
  Sex: Female
  Weight: 43.084 kg

DRUGS (7)
  1. YASMIN [Suspect]
     Indication: PREMENSTRUAL SYNDROME
     Route: 048
     Dates: start: 20060101, end: 20080115
  2. YAZ [Suspect]
     Indication: PREMENSTRUAL SYNDROME
     Route: 048
     Dates: start: 20080101, end: 20080815
  3. YASMIN [Suspect]
  4. NSAID'S [Concomitant]
     Dosage: UNK UNK, PRN
  5. ASCORBIC ACID [Concomitant]
     Indication: NASOPHARYNGITIS
  6. ANTIBIOTICS [Concomitant]
  7. YAZ [Suspect]

REACTIONS (2)
  - OEDEMA PERIPHERAL [None]
  - DEEP VEIN THROMBOSIS [None]
